FAERS Safety Report 12728933 (Version 1)
Quarter: 2016Q3

REPORT INFORMATION
  Report Type: Spontaneous
  Country: GB (occurrence: GB)
  Receive Date: 20160909
  Receipt Date: 20160909
  Transmission Date: 20161109
  Serious: Yes (Hospitalization)
  Sender: FDA-Public Use
  Company Number: GB-CONCORDIA PHARMACEUTICALS INC.-GSH201609-004395

PATIENT
  Age: 89 Year
  Sex: Female

DRUGS (16)
  1. QUININE [Concomitant]
     Active Substance: QUININE
  2. RANITIDINE. [Concomitant]
     Active Substance: RANITIDINE
  3. PREDNISOLONE. [Suspect]
     Active Substance: PREDNISOLONE
     Indication: RHEUMATOID ARTHRITIS
     Dosage: IN THE MORNING
     Route: 048
  4. DORZOLAMIDE [Concomitant]
     Active Substance: DORZOLAMIDE
  5. METHOTREXATE. [Concomitant]
     Active Substance: METHOTREXATE
  6. BRIMONIDINE [Concomitant]
     Active Substance: BRIMONIDINE TARTRATE
  7. PARACETAMOL [Concomitant]
     Active Substance: ACETAMINOPHEN
  8. FENTANYL. [Concomitant]
     Active Substance: FENTANYL
  9. SIMVASTATIN. [Concomitant]
     Active Substance: SIMVASTATIN
  10. XARELTO [Suspect]
     Active Substance: RIVAROXABAN
     Indication: DEEP VEIN THROMBOSIS
     Route: 048
     Dates: end: 20160821
  11. FOLIC ACID. [Concomitant]
     Active Substance: FOLIC ACID
  12. FUROSEMIDE. [Concomitant]
     Active Substance: FUROSEMIDE
  13. ALENDRONATE [Suspect]
     Active Substance: ALENDRONATE SODIUM
     Indication: OSTEOPOROSIS PROPHYLAXIS
     Route: 048
     Dates: end: 20160821
  14. ADCAL-D3 [Concomitant]
     Active Substance: CALCIUM CARBONATE\CHOLECALCIFEROL
  15. LATANOPROST. [Concomitant]
     Active Substance: LATANOPROST
  16. AMILORIDE [Concomitant]
     Active Substance: AMILORIDE

REACTIONS (6)
  - Haemoglobin decreased [Unknown]
  - Vomiting [Unknown]
  - Gastritis [Recovering/Resolving]
  - Diarrhoea [Unknown]
  - Oesophagitis [Recovering/Resolving]
  - Dizziness [Unknown]
